FAERS Safety Report 9250983 (Version 1)
Quarter: 2013Q1

REPORT INFORMATION
  Report Type: Spontaneous
  Country: US (occurrence: None)
  Receive Date: 20130305
  Receipt Date: 20130305
  Transmission Date: 20140127
  Serious: Yes (Other)
  Sender: FDA-Public Use
  Company Number: 163-21880-12061987 (0)

PATIENT
  Age: 82 Year
  Sex: Female

DRUGS (4)
  1. REVLIMID [Suspect]
     Indication: PLASMA CELL MYELOMA
     Dosage: 1 IN 1 D
     Route: 048
     Dates: start: 20110804, end: 20111004
  2. VELCADE (BORTEZOMID) [Concomitant]
  3. ERYTHROMYCIN (ERYTHROMYCIN) [Concomitant]
  4. METOPROLOL (METOPROLOL) [Concomitant]

REACTIONS (4)
  - Eye infection [None]
  - Herpes zoster [None]
  - Local swelling [None]
  - Cellulitis [None]
